FAERS Safety Report 24693236 (Version 1)
Quarter: 2024Q4

REPORT INFORMATION
  Report Type: Spontaneous
  Country: IT (occurrence: IT)
  Receive Date: 20241203
  Receipt Date: 20241203
  Transmission Date: 20250115
  Serious: Yes (Hospitalization, Other)
  Sender: SANDOZ
  Company Number: None

PATIENT
  Age: 73 Year
  Sex: Male

DRUGS (13)
  1. ACYCLOVIR [Suspect]
     Active Substance: ACYCLOVIR
     Indication: Product used for unknown indication
     Dosage: 7 TABLETS OF 800MG (5600MG TOTAL)
     Route: 048
     Dates: start: 20240927, end: 20240927
  2. ATORVASTATIN [Suspect]
     Active Substance: ATORVASTATIN
     Indication: Product used for unknown indication
     Dosage: 56 TABLETS OF 40MG
     Route: 048
     Dates: start: 20240927, end: 20240927
  3. AUGMENTIN [Suspect]
     Active Substance: AMOXICILLIN\CLAVULANATE POTASSIUM
     Indication: Product used for unknown indication
     Dosage: 6 TABLETS OF 1 GRAM (6 GRAMS)
     Route: 048
     Dates: start: 20240927, end: 20240927
  4. BACTRIM [Suspect]
     Active Substance: SULFAMETHOXAZOLE\TRIMETHOPRIM
     Indication: Product used for unknown indication
     Dosage: 8 TABLETS 800/160MG
     Route: 048
     Dates: start: 20240927, end: 20240927
  5. CLOPIDOGREL [Suspect]
     Active Substance: CLOPIDOGREL BISULFATE
     Indication: Product used for unknown indication
     Dosage: 42 TABLETS OF 75 MG (3150 MG TOTAL)
     Route: 048
     Dates: start: 20240927, end: 20240927
  6. ASPIRIN [Suspect]
     Active Substance: ASPIRIN
     Indication: Product used for unknown indication
     Dosage: 20 TABLETS OF 100MG (2GRAMS)
     Route: 048
     Dates: start: 20240927, end: 20240927
  7. CIPROFLOXACIN [Suspect]
     Active Substance: CIPROFLOXACIN
     Indication: Product used for unknown indication
     Dosage: 30 TABLETS OF 500MG (15GRAMS)
     Route: 048
     Dates: start: 20240927, end: 20240927
  8. FLUOXETINE HYDROCHLORIDE [Suspect]
     Active Substance: FLUOXETINE HYDROCHLORIDE
     Indication: Product used for unknown indication
     Dosage: 5 TABLETS OF 20 MG (100 MG)
     Route: 048
     Dates: start: 20240927, end: 20240927
  9. IBUPROFEN [Suspect]
     Active Substance: IBUPROFEN
     Indication: Product used for unknown indication
     Dosage: 15 TABLETS OF 400MG (6GRAMS)
     Route: 048
     Dates: start: 20240927, end: 20240927
  10. MEDROL [Suspect]
     Active Substance: METHYLPREDNISOLONE
     Indication: Product used for unknown indication
     Dosage: 10 TABLETS OF 16MG (160MG)
     Route: 048
     Dates: start: 20240927, end: 20240927
  11. PANTOPRAZOLE [Suspect]
     Active Substance: PANTOPRAZOLE
     Indication: Product used for unknown indication
     Dosage: 56 TABLETS OF 40MG (2240MG TOTAL)
     Route: 048
     Dates: start: 20240927, end: 20240927
  12. ACETAMINOPHEN [Suspect]
     Active Substance: ACETAMINOPHEN
     Indication: Product used for unknown indication
     Dosage: 8 TABLETS OF 1 GRAM (8 GRAMS)
     Route: 048
     Dates: start: 20240927, end: 20240927
  13. XANAX [Suspect]
     Active Substance: ALPRAZOLAM
     Indication: Product used for unknown indication
     Dosage: 10 TABLETS OF 0.5MG (5MG)
     Route: 048
     Dates: start: 20240927, end: 20240927

REACTIONS (3)
  - Poisoning [Unknown]
  - Hypotension [Unknown]
  - Tachycardia [Unknown]

NARRATIVE: CASE EVENT DATE: 20240927
